FAERS Safety Report 7411659-9 (Version None)
Quarter: 2011Q2

REPORT INFORMATION
  Report Type: 
  Country: None (occurrence: None)
  Receive Date: 20110413
  Receipt Date: 20101102
  Transmission Date: 20111010
  Serious: Yes (Hospitalization, Other)
  Sender: FDA-Public Use
  Company Number: US-BRISTOL-MYERS SQUIBB COMPANY-15336639

PATIENT
  Age: 4 Decade
  Sex: Male

DRUGS (2)
  1. ERBITUX [Suspect]
     Dosage: RECEIVED ONLY ONE TREATMENT
  2. RADIATION THERAPY [Suspect]

REACTIONS (3)
  - MALAISE [None]
  - MUCOSAL INFLAMMATION [None]
  - RASH PAPULAR [None]
